FAERS Safety Report 5105440-3 (Version None)
Quarter: 2006Q3

REPORT INFORMATION
  Report Type: 
  Country: None (occurrence: None)
  Receive Date: 20060915
  Receipt Date: 20060905
  Transmission Date: 20061208
  Serious: Yes (Other)
  Sender: FDA-Public Use
  Company Number: 2006PK01853

PATIENT
  Sex: Female

DRUGS (1)
  1. DISOPRIVAN [Suspect]
     Indication: SEDATIVE THERAPY

REACTIONS (3)
  - BLOOD CREATINE PHOSPHOKINASE INCREASED [None]
  - IMPAIRED HEALING [None]
  - INJECTION SITE EXTRAVASATION [None]
